FAERS Safety Report 16672028 (Version 2)
Quarter: 2025Q1

REPORT INFORMATION
  Report Type: Spontaneous
  Country: FR (occurrence: FR)
  Receive Date: 20190806
  Receipt Date: 20250218
  Transmission Date: 20250408
  Serious: No
  Sender: CSL BEHRING
  Company Number: FR-BEH-2019104950

PATIENT

DRUGS (1)
  1. PRIVIGEN [Suspect]
     Active Substance: HUMAN IMMUNOGLOBULIN G
     Indication: Product used for unknown indication
     Route: 065

REACTIONS (1)
  - Extravasation [Unknown]
